FAERS Safety Report 11070182 (Version 2)
Quarter: 2015Q2

REPORT INFORMATION
  Report Type: Report from Study
  Country: US (occurrence: US)
  Receive Date: 20150427
  Receipt Date: 20150501
  Transmission Date: 20150821
  Serious: Yes (Hospitalization, Other)
  Sender: FDA-Public Use
  Company Number: US-GILEAD-2015-0149888

PATIENT
  Age: 52 Year
  Sex: Female

DRUGS (1)
  1. LEDIPASVIR/SOFOSBUVIR [Suspect]
     Active Substance: LEDIPASVIR\SOFOSBUVIR
     Indication: CHRONIC HEPATITIS C
     Dosage: 1 DF, UNK
     Route: 048

REACTIONS (7)
  - Bladder irritation [Unknown]
  - Back disorder [Unknown]
  - Back pain [Unknown]
  - Nephrolithiasis [Unknown]
  - Dizziness [Unknown]
  - Vomiting [Unknown]
  - Urinary tract infection [Unknown]
